FAERS Safety Report 25119738 (Version 1)
Quarter: 2025Q1

REPORT INFORMATION
  Report Type: Report from Study
  Country: CA (occurrence: CA)
  Receive Date: 20250325
  Receipt Date: 20250325
  Transmission Date: 20250408
  Serious: Yes (Other)
  Sender: UCB
  Company Number: CA-UCBSA-2025015634

PATIENT
  Sex: Male

DRUGS (5)
  1. CERTOLIZUMAB PEGOL [Suspect]
     Active Substance: CERTOLIZUMAB PEGOL
     Indication: Ankylosing spondylitis
     Dosage: 400 MILLIGRAM, EV 2 WEEKS(QOW)
     Route: 058
     Dates: start: 20150407
  2. CERTOLIZUMAB PEGOL [Suspect]
     Active Substance: CERTOLIZUMAB PEGOL
     Dosage: 400 MILLIGRAM, EV 4 WEEKS
     Route: 058
  3. FISH OIL [Concomitant]
     Active Substance: FISH OIL
     Indication: Product used for unknown indication
  4. KERATIN [Concomitant]
     Active Substance: KERATIN
     Indication: Product used for unknown indication
  5. SODIUM COPPER CHLOROPHYLLIN [Concomitant]
     Active Substance: SODIUM COPPER CHLOROPHYLLIN
     Indication: Product used for unknown indication

REACTIONS (6)
  - Abdominal pain [Unknown]
  - Ankylosing spondylitis [Unknown]
  - Fall [Unknown]
  - Skin laceration [Unknown]
  - Thermal burn [Unknown]
  - Exostosis [Unknown]
